FAERS Safety Report 14314111 (Version 1)
Quarter: 2017Q4

REPORT INFORMATION
  Report Type: Spontaneous
  Country: GB (occurrence: GB)
  Receive Date: 20171221
  Receipt Date: 20171221
  Transmission Date: 20180321
  Serious: Yes (Other)
  Sender: FDA-Public Use
  Company Number: GB-TEVA-2017-GB-835375

PATIENT
  Age: 40 Year
  Sex: Female

DRUGS (1)
  1. CICLOSPORIN [Suspect]
     Active Substance: CYCLOSPORINE
     Indication: PSORIASIS
     Dosage: 100 MILLIGRAM DAILY;
     Route: 065

REACTIONS (6)
  - Blood creatinine increased [Unknown]
  - Blood pressure increased [Recovered/Resolved]
  - Stress [Unknown]
  - Skin disorder [Unknown]
  - Headache [Unknown]
  - Paraesthesia [Unknown]
